FAERS Safety Report 4994121-2 (Version None)
Quarter: 2006Q2

REPORT INFORMATION
  Report Type: 
  Country: None (occurrence: None)
  Receive Date: 20060505
  Receipt Date: 20060330
  Transmission Date: 20061013
  Serious: Yes (Death)
  Sender: FDA-Public Use
  Company Number: CN-ROCHE-442590

PATIENT
  Age: 64 Year
  Sex: Female

DRUGS (4)
  1. XELODA [Suspect]
     Indication: GASTRIC CANCER
     Route: 048
     Dates: start: 20050117, end: 20050523
  2. XELODA [Suspect]
     Dosage: FOR 14 DAYS.
     Route: 048
     Dates: start: 20041221
  3. XELODA [Suspect]
     Dosage: THE DOSE WAS DECREASED FOR THE FOLLOWING 21 DAYS.
     Route: 048
  4. OXALIPLATIN [Concomitant]
     Indication: GASTRIC CANCER
     Dosage: 200 MG PER DAY FOR 7 DAYS AND THE DOSE WAS CHANGED TO 150 MG PER DAY FOR THE FOLLOWING 28 DAYS.  FR+
     Route: 042
     Dates: start: 20041221, end: 20050523

REACTIONS (2)
  - MULTI-ORGAN FAILURE [None]
  - THROMBOCYTOPENIA [None]
